FAERS Safety Report 17726326 (Version 2)
Quarter: 2020Q4

REPORT INFORMATION
  Report Type: Spontaneous
  Country: US (occurrence: US)
  Receive Date: 20200430
  Receipt Date: 20201209
  Transmission Date: 20210113
  Serious: Yes (Hospitalization, Other)
  Sender: FDA-Public Use
  Company Number: US-ASTRAZENECA-2020SE54813

PATIENT
  Age: 428 Month
  Sex: Male
  Weight: 90.7 kg

DRUGS (18)
  1. NEXIUM [Suspect]
     Active Substance: ESOMEPRAZOLE MAGNESIUM
     Indication: GASTROOESOPHAGEAL REFLUX DISEASE
     Route: 048
     Dates: start: 2008, end: 202004
  2. PRILOSEC [Suspect]
     Active Substance: OMEPRAZOLE MAGNESIUM
     Indication: GASTROOESOPHAGEAL REFLUX DISEASE
     Dosage: GENERIC20.0MG UNKNOWN
     Route: 065
     Dates: start: 2005, end: 2008
  3. MELOXICAM. [Concomitant]
     Active Substance: MELOXICAM
     Indication: PAIN
     Dates: start: 200903
  4. NEXIUM [Suspect]
     Active Substance: ESOMEPRAZOLE MAGNESIUM
     Indication: GASTROOESOPHAGEAL REFLUX DISEASE
     Route: 048
     Dates: start: 200801, end: 201804
  5. NEXIUM [Suspect]
     Active Substance: ESOMEPRAZOLE MAGNESIUM
     Indication: GASTROOESOPHAGEAL REFLUX DISEASE
     Dosage: GENERIC
     Route: 065
     Dates: start: 202004
  6. PREVACID 24 HR [Suspect]
     Active Substance: LANSOPRAZOLE
     Indication: GASTROOESOPHAGEAL REFLUX DISEASE
     Dosage: 30.0MG UNKNOWN
     Route: 065
     Dates: start: 2007, end: 2008
  7. ACIPHEX [Suspect]
     Active Substance: RABEPRAZOLE SODIUM
     Indication: GASTROOESOPHAGEAL REFLUX DISEASE
     Dosage: 20.0MG UNKNOWN
     Route: 065
     Dates: start: 2005, end: 2008
  8. CIPROFLOXACIN. [Concomitant]
     Active Substance: CIPROFLOXACIN
     Indication: INFECTION
     Dates: start: 201109
  9. LOVASTATIN. [Concomitant]
     Active Substance: LOVASTATIN
     Indication: BLOOD CHOLESTEROL ABNORMAL
     Dates: start: 200909
  10. ATORVASTATIN [Concomitant]
     Active Substance: ATORVASTATIN
     Indication: BLOOD CHOLESTEROL ABNORMAL
     Dates: start: 201707
  11. PRILOSEC [Suspect]
     Active Substance: OMEPRAZOLE MAGNESIUM
     Indication: GASTROOESOPHAGEAL REFLUX DISEASE
     Dosage: 40.0MG UNKNOWN
     Route: 048
     Dates: start: 2005, end: 2008
  12. CEPHALEXIN. [Concomitant]
     Active Substance: CEPHALEXIN
     Indication: INFECTION
     Dates: start: 201310
  13. PEPCID [Concomitant]
     Active Substance: FAMOTIDINE
     Dates: start: 2000
  14. TUMS [Concomitant]
     Active Substance: CALCIUM CARBONATE
     Dates: start: 1990
  15. ROLAIDS [Concomitant]
     Active Substance: CALCIUM CARBONATE\MAGNESIUM HYDROXIDE
     Dates: start: 1990
  16. AZITHROMYCIN ANHYDROUS. [Concomitant]
     Active Substance: AZITHROMYCIN ANHYDROUS
     Indication: INFECTION
     Dates: start: 201103
  17. LEVOFLOXACIN. [Concomitant]
     Active Substance: LEVOFLOXACIN
     Indication: INFECTION
     Dates: start: 201512
  18. AMOXICILLIN. [Concomitant]
     Active Substance: AMOXICILLIN
     Indication: INFECTION
     Dates: start: 201307

REACTIONS (2)
  - Renal failure [Unknown]
  - Acute kidney injury [Not Recovered/Not Resolved]

NARRATIVE: CASE EVENT DATE: 200912
